FAERS Safety Report 8965988 (Version 1)
Quarter: 2012Q4

REPORT INFORMATION
  Report Type: 
  Country: US (occurrence: US)
  Receive Date: 20121214
  Receipt Date: 20121214
  Transmission Date: 20130627
  Serious: Yes (Other)
  Sender: FDA-Public Use
  Company Number: CHPA2012US024760

PATIENT
  Age: 74 Year
  Sex: Female

DRUGS (2)
  1. BENEFIBER W/ WHEAT DEXTRIN [Suspect]
     Indication: DIVERTICULUM
     Dosage: 1 HEAPING TEASPOON, Unk
     Route: 048
  2. BENEFIBER STICK PACKS [Suspect]
     Dosage: 1 PACK, A DAY
     Route: 048

REACTIONS (3)
  - Sinusitis [Recovered/Resolved]
  - Oropharyngeal pain [Recovered/Resolved]
  - Cough [Recovered/Resolved]
